FAERS Safety Report 4607288-2 (Version None)
Quarter: 2005Q1

REPORT INFORMATION
  Report Type: 
  Country: None (occurrence: None)
  Receive Date: 20050311
  Receipt Date: 20050311
  Transmission Date: 20050727
  Serious: No
  Sender: FDA-Public Use
  Company Number: None

PATIENT

DRUGS (1)
  1. CELEXA [Suspect]
     Indication: AUTISM
     Dosage: PO
     Route: 048

REACTIONS (5)
  - ABNORMAL BEHAVIOUR [None]
  - DISEASE RECURRENCE [None]
  - DYSPHEMIA [None]
  - PHARMACEUTICAL PRODUCT COMPLAINT [None]
  - TIC [None]
